FAERS Safety Report 8999331 (Version 6)
Quarter: 2013Q4

REPORT INFORMATION
  Report Type: Spontaneous
  Country: US (occurrence: US)
  Receive Date: 20130103
  Receipt Date: 20131030
  Transmission Date: 20140711
  Serious: Yes (Hospitalization, Disabling, Other)
  Sender: FDA-Public Use
  Company Number: US-JNJFOC-20121214109

PATIENT
  Age: 51 Year
  Sex: Female

DRUGS (31)
  1. REMICADE [Suspect]
     Indication: CROHN^S DISEASE
     Route: 042
     Dates: start: 20010918
  2. REMICADE [Suspect]
     Indication: CROHN^S DISEASE
     Route: 042
     Dates: start: 20011002
  3. REMICADE [Suspect]
     Indication: CROHN^S DISEASE
     Route: 042
     Dates: start: 1999
  4. VOLTAREN [Concomitant]
     Dosage: 30 DAYS, 3 REFILLS, 100 MG TUBE APPLY TO AFFECTED AREA TWICE DAILY
     Route: 065
  5. LOMOTIL [Concomitant]
     Indication: DIARRHOEA
     Dosage: 2.5 TO 0.025 MG, 30 DAYS, 3 REFILLS - AS NEEDED
     Route: 065
  6. ASACOL [Concomitant]
     Indication: CROHN^S DISEASE
     Route: 065
  7. IMURAN [Concomitant]
     Indication: CROHN^S DISEASE
     Route: 065
  8. BENADRYL [Concomitant]
     Indication: PROPHYLAXIS
     Route: 065
     Dates: start: 20011002
  9. SOLU MEDROL [Concomitant]
     Indication: PROPHYLAXIS
     Route: 065
     Dates: start: 20011002
  10. SOLU MEDROL [Concomitant]
     Indication: PROPHYLAXIS
     Route: 065
     Dates: start: 20010918
  11. SOLU MEDROL [Concomitant]
     Indication: PROPHYLAXIS
     Route: 065
     Dates: start: 20010918
  12. SOLU MEDROL [Concomitant]
     Indication: PROPHYLAXIS
     Route: 065
     Dates: start: 20011002
  13. EPINEPHRINE [Concomitant]
     Indication: PROPHYLAXIS
     Route: 065
     Dates: start: 20010918
  14. ENDOCET [Concomitant]
     Indication: ARTHRALGIA
     Dosage: 10 TO 325 MG, 30 DAYS, 0 REFILLS
     Route: 065
  15. MAXALT [Concomitant]
     Indication: MIGRAINE
     Dosage: 30 DAYS, 2 REFILLS, 1 TABLET ONCE 6 HOURS, AS NECESSARY
     Route: 065
  16. STADOL [Concomitant]
     Indication: MIGRAINE
     Route: 065
  17. ALPRAZOLAM [Concomitant]
     Dosage: 30 DAYS, 3 REFILLS
     Route: 065
  18. BUTORPHANOL TARTRATE [Concomitant]
     Dosage: ONCE EVERY 4 TO 6 HOURS AS NEEDED, 30 DAYS, 0 REFILLS
     Route: 065
  19. CALCIUM [Concomitant]
     Dosage: 30 DAYS, 5 REFILLS
     Route: 065
  20. CLOTRIMAZOLE-BETAMETHASONE [Concomitant]
     Dosage: 1 TO 0.05 % CREAM, 30 DAYS, 1 REFILLS, 30 GRAMS APPLY TWICE DAILY SPARINGLY
     Route: 065
  21. LIDODERM [Concomitant]
     Dosage: 30 DAYS, 5 REFILLS, 12 HOURS ON 12 HOURS OFF
     Route: 065
  22. NASONEX [Concomitant]
     Dosage: 30 DAYS, ONE REFILL
     Route: 065
  23. NEURONTIN [Concomitant]
     Dosage: 30 DAYS, 3 REFILLS
     Route: 065
  24. NORCO [Concomitant]
     Indication: PAIN
     Dosage: 10 TO 325 MG, 30 DAYS, 0 REFILLS
     Route: 065
  25. NYSTATIN [Concomitant]
     Dosage: 100000 U/G, 30 DAYS, 5 REFILLS, USE THRICE DAILY AS NECESSARY
     Route: 065
  26. SOMA [Concomitant]
     Dosage: 30 DAYS, 0 REFILLS
     Route: 065
  27. VITAMIN D [Concomitant]
     Dosage: 2000 UNIT, 50 DAYS, 6 REFILLS,
     Route: 065
  28. VITAMIN D3 [Concomitant]
     Dosage: 2000 UNIT, 50 DAYS, 6 REFILLS,
     Route: 065
  29. WELLBUTRIN  XL [Concomitant]
     Dosage: ^TB24^ 30 DAYS, 0 REFILLS
     Route: 065
  30. DONNATAL [Concomitant]
     Dosage: 30 DAYS, 3 REFILLS
     Route: 065
  31. ACYCLOVIR [Concomitant]
     Dosage: 7 DAYS, 0 REFILLS, 5 TIMES A DAY
     Route: 065

REACTIONS (28)
  - Influenza like illness [Unknown]
  - Arthralgia [Unknown]
  - Serum sickness [Not Recovered/Not Resolved]
  - Anxiety [Not Recovered/Not Resolved]
  - Depression [Not Recovered/Not Resolved]
  - Anaphylactic reaction [Unknown]
  - Infusion related reaction [Unknown]
  - Suicidal ideation [Unknown]
  - Fibromyalgia [Unknown]
  - Pain [Not Recovered/Not Resolved]
  - Crohn^s disease [Unknown]
  - Nerve injury [Unknown]
  - Dyspnoea [Unknown]
  - Herpes zoster [Unknown]
  - Rhinitis allergic [Unknown]
  - Chronic sinusitis [Unknown]
  - Gastrooesophageal reflux disease [Unknown]
  - Irritable bowel syndrome [Unknown]
  - Road traffic accident [Unknown]
  - Post-traumatic neck syndrome [Unknown]
  - Rib fracture [Unknown]
  - Intervertebral disc protrusion [Unknown]
  - Rash [Unknown]
  - Plantar fasciitis [Unknown]
  - Tendonitis [Unknown]
  - Thirst [Unknown]
  - Insomnia [Unknown]
  - Vitamin D deficiency [Unknown]
